FAERS Safety Report 8395947-8 (Version None)
Quarter: 2012Q2

REPORT INFORMATION
  Report Type: 
  Country: None (occurrence: None)
  Receive Date: 20120530
  Receipt Date: 20120525
  Transmission Date: 20120825
  Serious: Yes (Death, Other)
  Sender: FDA-Public Use
  Company Number: US-ROCHE-1062127

PATIENT
  Sex: Female

DRUGS (18)
  1. CIPROFLOXACIN HCL [Concomitant]
  2. PAXIL [Concomitant]
  3. COMPAZINE [Concomitant]
  4. NEULASTA [Concomitant]
     Route: 065
  5. PRILOSEC [Concomitant]
  6. ACETAMINOPHEN W/ CODEINE [Concomitant]
  7. NYSTATIN [Concomitant]
  8. RESTORIL [Concomitant]
  9. SEPTRA DS [Concomitant]
  10. AVASTIN [Suspect]
     Indication: PRODUCT USED FOR UNKNOWN INDICATION
  11. ATIVAN [Concomitant]
  12. ROBITUSSIN AC (UNITED STATES) [Concomitant]
  13. VICODIN [Concomitant]
  14. PERCOCET [Concomitant]
  15. DURAGESIC-100 [Concomitant]
  16. HYDROCODONE BITARTRATE + ACETAMINOPHEN [Concomitant]
  17. DEXAMETHASONE [Concomitant]
  18. GEMZAR [Concomitant]

REACTIONS (2)
  - DEATH [None]
  - MYOCARDIAL INFARCTION [None]
